FAERS Safety Report 7934493-X (Version None)
Quarter: 2011Q4

REPORT INFORMATION
  Report Type: 
  Country: None (occurrence: None)
  Receive Date: 20111122
  Receipt Date: 20111114
  Transmission Date: 20120403
  Serious: Yes (Life-Threatening, Other)
  Sender: FDA-Public Use
  Company Number: IT-GLAXOSMITHKLINE-B0764072A

PATIENT
  Sex: Female

DRUGS (5)
  1. ENOXAPARIN SODIUM [Concomitant]
     Dosage: 6000IU PER DAY
     Route: 058
     Dates: start: 20110818, end: 20110821
  2. PROPAFENONE HCL [Suspect]
     Indication: ATRIAL FIBRILLATION
     Dosage: 325MG TWICE PER DAY
     Route: 048
     Dates: start: 20110818, end: 20110821
  3. ASPIRIN [Concomitant]
     Dosage: 100MG PER DAY
     Route: 048
     Dates: start: 20110818, end: 20110821
  4. OLPREZIDE [Concomitant]
     Dosage: 20MG PER DAY
     Route: 048
     Dates: start: 20110818, end: 20110821
  5. COUMADIN [Concomitant]
     Dosage: 5MG PER DAY
     Route: 065
     Dates: start: 20110818, end: 20110821

REACTIONS (4)
  - HYPOTENSION [None]
  - ATRIAL FIBRILLATION [None]
  - LOSS OF CONSCIOUSNESS [None]
  - SYNCOPE [None]
